FAERS Safety Report 8269313-X (Version None)
Quarter: 2012Q2

REPORT INFORMATION
  Report Type: 
  Country: None (occurrence: None)
  Receive Date: 20120409
  Receipt Date: 20120330
  Transmission Date: 20120825
  Serious: Yes (Death)
  Sender: FDA-Public Use
  Company Number: US-CELGENEUS-163-21880-12031116

PATIENT
  Sex: Female

DRUGS (5)
  1. PROCRIT [Concomitant]
     Route: 065
     Dates: start: 20070806, end: 20080318
  2. RED BLOOD CELLS [Concomitant]
     Route: 065
  3. REVLIMID [Suspect]
     Dosage: 10 MILLIGRAM
     Route: 048
     Dates: start: 20100201, end: 20110722
  4. REVLIMID [Suspect]
     Dosage: 10 MILLIGRAM
     Route: 048
     Dates: start: 20080130
  5. NEUPOGEN [Concomitant]
     Route: 065
     Dates: start: 20071016, end: 20080318

REACTIONS (4)
  - DEMENTIA [None]
  - PARKINSON'S DISEASE [None]
  - HYPERNATRAEMIA [None]
  - DEHYDRATION [None]
